FAERS Safety Report 8263379-9 (Version None)
Quarter: 2012Q2

REPORT INFORMATION
  Report Type: 
  Country: None (occurrence: None)
  Receive Date: 20120405
  Receipt Date: 20120327
  Transmission Date: 20120825
  Serious: Yes (Hospitalization)
  Sender: FDA-Public Use
  Company Number: FR-MILLENNIUM PHARMACEUTICALS, INC.-2012-01964

PATIENT

DRUGS (5)
  1. DEXAMETHASONE [Suspect]
     Indication: MULTIPLE MYELOMA
     Dosage: 10 MG, UNK
     Route: 065
     Dates: start: 20110607, end: 20120303
  2. VELCADE [Suspect]
     Indication: MULTIPLE MYELOMA
     Dosage: 2.4 MG, UNK
     Route: 065
     Dates: start: 20110607, end: 20120302
  3. REVLIMID [Suspect]
     Indication: MULTIPLE MYELOMA
     Dosage: 15 MG, UNK
     Route: 065
     Dates: start: 20110607, end: 20120304
  4. PENTACARINAT [Concomitant]
     Indication: PROPHYLAXIS
  5. ZOMETA [Concomitant]
     Indication: PROPHYLAXIS

REACTIONS (2)
  - LUNG DISORDER [None]
  - HYPOXIA [None]
